FAERS Safety Report 25510558 (Version 1)
Quarter: 2025Q3

REPORT INFORMATION
  Report Type: Spontaneous
  Country: US (occurrence: US)
  Receive Date: 20250703
  Receipt Date: 20250703
  Transmission Date: 20251020
  Serious: No
  Sender: RADIUS PHARM
  Company Number: US-RADIUS HEALTH INC.-2024US005894

PATIENT
  Sex: Female
  Weight: 64.8 kg

DRUGS (1)
  1. TYMLOS [Suspect]
     Active Substance: ABALOPARATIDE
     Indication: Osteoporosis
     Route: 058

REACTIONS (4)
  - Contusion [Recovered/Resolved]
  - Pain [Unknown]
  - Peripheral swelling [Unknown]
  - Nausea [Recovered/Resolved]
